FAERS Safety Report 23733508 (Version 1)
Quarter: 2024Q2

REPORT INFORMATION
  Report Type: Report from Study
  Country: NL (occurrence: NL)
  Receive Date: 20240411
  Receipt Date: 20240411
  Transmission Date: 20240715
  Serious: Yes (Death, Other)
  Sender: FDA-Public Use
  Company Number: NL-VER-202400029

PATIENT
  Age: 89 Year
  Sex: Male

DRUGS (3)
  1. TRIPTORELIN PAMOATE [Suspect]
     Active Substance: TRIPTORELIN PAMOATE
     Indication: Prostate cancer
     Dosage: 22.5 MILLIGRAM, SUSPENSION FOR INJECTION
     Route: 030
     Dates: start: 20221018, end: 20221018
  2. TRIPTORELIN PAMOATE [Suspect]
     Active Substance: TRIPTORELIN PAMOATE
     Indication: Prostate cancer
     Dosage: 22.5 MILLIGRAM, SUSPENSION FOR INJECTION
     Route: 030
     Dates: start: 20230420, end: 20230420
  3. TRIPTORELIN PAMOATE [Suspect]
     Active Substance: TRIPTORELIN PAMOATE
     Indication: Prostate cancer
     Dosage: 22.5 MILLIGRAM, SUSPENSION FOR INJECTION
     Route: 030
     Dates: start: 20231019, end: 20231019

REACTIONS (1)
  - Death [Fatal]

NARRATIVE: CASE EVENT DATE: 20240330
